FAERS Safety Report 20984983 (Version 1)
Quarter: 2022Q2

REPORT INFORMATION
  Report Type: Spontaneous
  Country: EG (occurrence: EG)
  Receive Date: 20220621
  Receipt Date: 20220621
  Transmission Date: 20220720
  Serious: Yes (Life-Threatening, Other)
  Sender: FDA-Public Use
  Company Number: EG-NOVOPROD-928506

PATIENT
  Sex: Male
  Weight: 54 kg

DRUGS (4)
  1. INSULIN HUMAN [Suspect]
     Active Substance: INSULIN HUMAN
     Indication: Type 2 diabetes mellitus
     Dosage: 60 IU, QD(40 U MORNING AND 20 U AFTERNOON)
     Route: 058
  2. CAPTOPRIL [Concomitant]
     Active Substance: CAPTOPRIL
     Indication: Hypertension
     Dosage: 2 TAB/DAY
     Route: 048
  3. FOLICAP [Concomitant]
     Indication: Psoriasis
     Dosage: 0.7 ML, QW(0.5 MG)
     Route: 030
  4. TRI B [PYRIDOXINE HYDROCHLORIDE;VITAMIN B1 NOS;VITAMIN B12 NOS] [Concomitant]
     Indication: Product used for unknown indication
     Dosage: 1 INJECTION/DAY
     Route: 065

REACTIONS (5)
  - Circulatory collapse [Unknown]
  - Hypoglycaemia [Unknown]
  - Treatment noncompliance [Unknown]
  - Hyperglycaemia [Unknown]
  - Intentional product use issue [Unknown]

NARRATIVE: CASE EVENT DATE: 20100101
